FAERS Safety Report 7288635-2 (Version None)
Quarter: 2011Q1

REPORT INFORMATION
  Report Type: 
  Country: None (occurrence: None)
  Receive Date: 20110208
  Receipt Date: 20110208
  Transmission Date: 20110831
  Serious: No
  Sender: FDA-Public Use
  Company Number: None

PATIENT
  Age: 36 Year
  Sex: Female
  Weight: 98.4306 kg

DRUGS (1)
  1. EQUATE NICOTINE TRANSDERMAL SYST 21 MG WAL-MART STORES INC. [Suspect]

REACTIONS (14)
  - SPEECH DISORDER [None]
  - FEELING ABNORMAL [None]
  - FEAR [None]
  - HALLUCINATION [None]
  - HOT FLUSH [None]
  - APPLICATION SITE PRURITUS [None]
  - CHEST PAIN [None]
  - NECK PAIN [None]
  - PANIC REACTION [None]
  - NERVOUS SYSTEM DISORDER [None]
  - HEADACHE [None]
  - APPLICATION SITE PAIN [None]
  - TREMOR [None]
  - CHILLS [None]
